FAERS Safety Report 9823411 (Version 2)
Quarter: 2014Q1

REPORT INFORMATION
  Report Type: Spontaneous
  Country: US (occurrence: US)
  Receive Date: 20140116
  Receipt Date: 20140116
  Transmission Date: 20141002
  Serious: No
  Sender: FDA-Public Use
  Company Number: US-GILEAD-2011-0035163

PATIENT
  Age: 86 Year
  Sex: Female
  Weight: 52.16 kg

DRUGS (15)
  1. LETAIRIS [Suspect]
     Indication: PULMONARY HYPERTENSION
     Route: 048
     Dates: start: 20101129, end: 20110103
  2. REVATIO [Concomitant]
  3. ATENOLOL [Concomitant]
  4. WARFARIN [Concomitant]
  5. LASIX [Concomitant]
  6. PREVACID [Concomitant]
  7. LEVOTHYROXINE [Concomitant]
  8. DORZOLAMIDE HYDROCHLORIDE/TIMOLOL MALEATE [Concomitant]
  9. LUMIGAN [Concomitant]
  10. ALPHAGAN [Concomitant]
  11. PRESERVISION [Concomitant]
  12. LUTEIN [Concomitant]
  13. POTASSIUM GLUCONATE [Concomitant]
  14. CENTRUM SILVER THERAPEUTIC MULTIPLE VITAMINS WITH MINERALS [Concomitant]
  15. FISH OIL [Concomitant]

REACTIONS (4)
  - Decreased appetite [Recovered/Resolved]
  - Fatigue [Recovered/Resolved]
  - Malaise [Recovered/Resolved]
  - Local swelling [Recovered/Resolved]
